FAERS Safety Report 10556949 (Version 1)
Quarter: 2014Q4

REPORT INFORMATION
  Report Type: Other
  Country: AU (occurrence: AU)
  Receive Date: 20141031
  Receipt Date: 20141031
  Transmission Date: 20150529
  Serious: Yes (Other)
  Sender: FDA-Public Use
  Company Number: AU-LUPIN PHARMACEUTICALS INC.-2013-01937

PATIENT
  Sex: Male

DRUGS (1)
  1. CEFTRIAXONE. [Suspect]
     Active Substance: CEFTRIAXONE
     Indication: GONORRHOEA
     Route: 030

REACTIONS (2)
  - Treatment failure [Unknown]
  - Drug resistance [Unknown]
